FAERS Safety Report 5611233-0 (Version None)
Quarter: 2008Q1

REPORT INFORMATION
  Report Type: 
  Country: None (occurrence: None)
  Receive Date: 20080201
  Receipt Date: 20080125
  Transmission Date: 20080703
  Serious: Yes (Other)
  Sender: FDA-Public Use
  Company Number: US-GILEAD-2008-0014943

PATIENT
  Sex: Male
  Weight: 88.076 kg

DRUGS (7)
  1. LETAIRIS [Suspect]
     Indication: PULMONARY HYPERTENSION
     Dosage: NI
     Route: 048
     Dates: start: 20071101, end: 20071101
  2. ALDACTONE [Concomitant]
     Indication: GENERALISED OEDEMA
     Route: 048
     Dates: start: 20071201, end: 20080101
  3. FUROSEMIDE [Concomitant]
     Indication: GENERALISED OEDEMA
     Route: 048
     Dates: start: 20071201
  4. GLIPIZIDE [Concomitant]
     Indication: DIABETES MELLITUS
     Route: 048
     Dates: start: 20050101
  5. METFORMIN HCL [Concomitant]
     Indication: DIABETES MELLITUS
     Route: 054
     Dates: start: 20060101, end: 20080101
  6. PROPRANOLOL LA [Concomitant]
     Indication: VARICES OESOPHAGEAL
     Route: 048
     Dates: start: 20060101, end: 20080101
  7. LACTULOSE [Concomitant]
     Indication: ENCEPHALOPATHY
     Route: 048
     Dates: start: 20050101, end: 20080101

REACTIONS (2)
  - CHEST PAIN [None]
  - FLANK PAIN [None]
